FAERS Safety Report 25493057 (Version 1)
Quarter: 2025Q2

REPORT INFORMATION
  Report Type: Spontaneous
  Country: US (occurrence: US)
  Receive Date: 20250630
  Receipt Date: 20250630
  Transmission Date: 20250716
  Serious: No
  Sender: UCB
  Company Number: US-UCBSA-2025000109

PATIENT
  Sex: Male

DRUGS (2)
  1. NAYZILAM [Suspect]
     Active Substance: MIDAZOLAM
     Indication: Aphasia
  2. NAYZILAM [Suspect]
     Active Substance: MIDAZOLAM
     Indication: Off label use

REACTIONS (2)
  - Off label use [Unknown]
  - Expired product administered [Unknown]
